FAERS Safety Report 18804434 (Version 3)
Quarter: 2021Q1

REPORT INFORMATION
  Report Type: Spontaneous
  Country: US (occurrence: US)
  Receive Date: 20210129
  Receipt Date: 20210317
  Transmission Date: 20210419
  Serious: No
  Sender: FDA-Public Use
  Company Number: NVSC2021US017756

PATIENT
  Sex: Female

DRUGS (1)
  1. ILEVRO [Suspect]
     Active Substance: NEPAFENAC
     Indication: POSTOPERATIVE CARE
     Dosage: 3 MG, QD
     Route: 047
     Dates: start: 202009, end: 202009

REACTIONS (3)
  - Hypersensitivity [Unknown]
  - Dizziness [Unknown]
  - Malaise [Unknown]
